FAERS Safety Report 22751579 (Version 3)
Quarter: 2024Q2

REPORT INFORMATION
  Report Type: Spontaneous
  Country: US (occurrence: None)
  Receive Date: 20230726
  Receipt Date: 20240403
  Transmission Date: 20240716
  Serious: No
  Sender: FDA-Public Use
  Company Number: 2023A168901

PATIENT
  Age: 21598 Day

DRUGS (2)
  1. BYDUREON BCISE [Suspect]
     Active Substance: EXENATIDE
     Indication: Type 2 diabetes mellitus
     Route: 058
  2. BYDUREON [Suspect]
     Active Substance: EXENATIDE
     Route: 058

REACTIONS (10)
  - Injection site haemorrhage [Unknown]
  - Spinal disorder [Unknown]
  - Delusion of parasitosis [Unknown]
  - Skin ulcer [Unknown]
  - Insomnia [Unknown]
  - Memory impairment [Unknown]
  - Muscular weakness [Unknown]
  - Device malfunction [Unknown]
  - Injection site discharge [Unknown]
  - Device delivery system issue [Unknown]

NARRATIVE: CASE EVENT DATE: 20230724
